FAERS Safety Report 21152402 (Version 1)
Quarter: 2022Q3

REPORT INFORMATION
  Report Type: Spontaneous
  Country: US (occurrence: US)
  Receive Date: 20220730
  Receipt Date: 20220730
  Transmission Date: 20221026
  Serious: No
  Sender: FDA-Public Use
  Company Number: US-SA-SAC20220722000232

PATIENT
  Sex: Female

DRUGS (15)
  1. DUPIXENT [Suspect]
     Active Substance: DUPILUMAB
     Indication: Osteoporotic fracture
     Dosage: 300 MG, QOW
     Route: 058
     Dates: start: 202012
  2. DUPIXENT [Suspect]
     Active Substance: DUPILUMAB
     Indication: Asthma
  3. PROLIA [Concomitant]
     Active Substance: DENOSUMAB
  4. EZETIMIBE [Concomitant]
     Active Substance: EZETIMIBE
  5. MEROPENEM [Concomitant]
     Active Substance: MEROPENEM
     Dosage: UNK
     Route: 042
  6. ALPRAZOLAM [Concomitant]
     Active Substance: ALPRAZOLAM
  7. PREDNISONE [Concomitant]
     Active Substance: PREDNISONE
  8. SINGULAIR [Concomitant]
     Active Substance: MONTELUKAST SODIUM
  9. SYNTHROID [Concomitant]
     Active Substance: LEVOTHYROXINE SODIUM
  10. LORAZEPAM [Concomitant]
     Active Substance: LORAZEPAM
  11. IPRATROPIUM BR [Concomitant]
  12. ALBUTEROL [Concomitant]
     Active Substance: ALBUTEROL
  13. ADVAIR HFA [Concomitant]
     Active Substance: FLUTICASONE PROPIONATE\SALMETEROL XINAFOATE
  14. VFEND [Concomitant]
     Active Substance: VORICONAZOLE
  15. CAYSTON [Concomitant]
     Active Substance: AZTREONAM

REACTIONS (2)
  - Condition aggravated [Unknown]
  - Product use in unapproved indication [Unknown]

NARRATIVE: CASE EVENT DATE: 20201201
